FAERS Safety Report 6786398-8 (Version None)
Quarter: 2010Q2

REPORT INFORMATION
  Report Type: 
  Country: None (occurrence: None)
  Receive Date: 20100623
  Receipt Date: 20100615
  Transmission Date: 20101027
  Serious: Yes (Hospitalization)
  Sender: FDA-Public Use
  Company Number: FR-GILEAD-2010-0029851

PATIENT
  Sex: Female

DRUGS (5)
  1. TRUVADA [Suspect]
     Indication: HIV INFECTION
     Route: 048
     Dates: start: 20100217, end: 20100503
  2. ISENTRESS [Suspect]
     Route: 048
     Dates: start: 20100217, end: 20100503
  3. REYATAZ [Suspect]
     Route: 048
     Dates: start: 20100217, end: 20100503
  4. MALOCIDE [Suspect]
     Indication: TOXOPLASMOSIS
     Route: 048
     Dates: start: 20100211, end: 20100426
  5. ADIAZINE [Concomitant]
     Indication: TOXOPLASMOSIS
     Dates: start: 20100211, end: 20100416

REACTIONS (2)
  - DRUG RASH WITH EOSINOPHILIA AND SYSTEMIC SYMPTOMS [None]
  - EOSINOPHILIA [None]
